FAERS Safety Report 8016234-3 (Version None)
Quarter: 2011Q4

REPORT INFORMATION
  Report Type: 
  Country: None (occurrence: None)
  Receive Date: 20111230
  Receipt Date: 20111227
  Transmission Date: 20120403
  Serious: Yes (Hospitalization)
  Sender: FDA-Public Use
  Company Number: US-MERCK-1110USA02256

PATIENT
  Age: 59 Year
  Sex: Female

DRUGS (2)
  1. FOSAMAX [Suspect]
     Indication: OSTEOPENIA
     Route: 048
     Dates: start: 20070301, end: 20080601
  2. FOSAMAX [Suspect]
     Route: 048
     Dates: start: 20080601, end: 20091101

REACTIONS (10)
  - ORAL DISORDER [None]
  - FOOT FRACTURE [None]
  - FEMUR FRACTURE [None]
  - TOOTH DISORDER [None]
  - DEPRESSION [None]
  - IMPAIRED HEALING [None]
  - LOW TURNOVER OSTEOPATHY [None]
  - FRACTURE NONUNION [None]
  - GASTRITIS [None]
  - BLOOD CHOLESTEROL INCREASED [None]
